FAERS Safety Report 18904449 (Version 1)
Quarter: 2021Q1

REPORT INFORMATION
  Report Type: Spontaneous
  Country: CN (occurrence: CN)
  Receive Date: 20210217
  Receipt Date: 20210217
  Transmission Date: 20210420
  Serious: Yes (Other)
  Sender: FDA-Public Use
  Company Number: CN-JNJFOC-20210225130

PATIENT
  Age: 11 Day
  Sex: Female
  Weight: .84 kg

DRUGS (1)
  1. CHILDRENS MOTRIN [Suspect]
     Active Substance: IBUPROFEN
     Indication: NEONATAL RESPIRATORY DISTRESS SYNDROME
     Route: 048
     Dates: start: 20210202, end: 20210204

REACTIONS (1)
  - Oliguria [Recovering/Resolving]

NARRATIVE: CASE EVENT DATE: 20210202
